FAERS Safety Report 8517374 (Version 2)
Quarter: 2013Q4

REPORT INFORMATION
  Report Type: Spontaneous
  Country: US (occurrence: US)
  Receive Date: 20120417
  Receipt Date: 20131114
  Transmission Date: 20140711
  Serious: Yes (Other)
  Sender: FDA-Public Use
  Company Number: US-ASTRAZENECA-2011SE15775

PATIENT
  Age: 44 Year
  Sex: Female
  Weight: 90.7 kg

DRUGS (16)
  1. NEXIUM [Suspect]
     Indication: GASTRIC DISORDER
     Route: 048
     Dates: start: 2000
  2. NEXIUM [Suspect]
     Indication: DUODENAL ULCER
     Route: 048
     Dates: start: 2000
  3. NEXIUM [Suspect]
     Indication: GASTRIC DISORDER
     Route: 048
     Dates: start: 2000
  4. NEXIUM [Suspect]
     Indication: DUODENAL ULCER
     Route: 048
     Dates: start: 2000
  5. NEXIUM [Suspect]
     Indication: GASTRIC DISORDER
     Route: 048
     Dates: end: 201309
  6. NEXIUM [Suspect]
     Indication: DUODENAL ULCER
     Route: 048
     Dates: end: 201309
  7. SEROQUEL [Suspect]
     Indication: SLEEP DISORDER
     Route: 048
     Dates: start: 20131023
  8. MORPHINE [Suspect]
     Route: 065
  9. EFFEXOR XR [Concomitant]
     Indication: SLEEP DISORDER
     Route: 048
     Dates: start: 2000, end: 201308
  10. EFFEXOR XR [Concomitant]
     Indication: ANXIETY
     Route: 048
     Dates: start: 2000, end: 201308
  11. EFFEXOR XR [Concomitant]
     Indication: SLEEP DISORDER
     Route: 048
     Dates: start: 201308
  12. EFFEXOR XR [Concomitant]
     Indication: ANXIETY
     Route: 048
     Dates: start: 201308
  13. FLEXERIL [Concomitant]
     Indication: MYALGIA
     Route: 048
     Dates: start: 2007
  14. VITAMIN D [Concomitant]
     Indication: VITAMIN D DECREASED
     Dosage: 50000 ONCE A WEEK
     Route: 048
     Dates: start: 2003, end: 2011
  15. VITAMIN D [Concomitant]
     Indication: VITAMIN D DECREASED
     Dosage: 2000 UNITS FOUR TIMES A DAY
     Route: 048
     Dates: start: 2011
  16. MULTIVITAMIN [Concomitant]
     Indication: SUPPLEMENTATION THERAPY
     Dosage: 1 TAB DAILY
     Route: 048
     Dates: start: 201305

REACTIONS (23)
  - Craniocerebral injury [Recovered/Resolved with Sequelae]
  - Back injury [Unknown]
  - Accident [Recovered/Resolved with Sequelae]
  - Injury [Recovered/Resolved with Sequelae]
  - Neck injury [Unknown]
  - Limb injury [Recovered/Resolved with Sequelae]
  - Nausea [Not Recovered/Not Resolved]
  - Diarrhoea [Not Recovered/Not Resolved]
  - Aphagia [Not Recovered/Not Resolved]
  - Bursa injury [Not Recovered/Not Resolved]
  - Post-traumatic stress disorder [Unknown]
  - Chronic fatigue syndrome [Unknown]
  - Fibromyalgia [Unknown]
  - Malaise [Not Recovered/Not Resolved]
  - Memory impairment [Not Recovered/Not Resolved]
  - Abdominal discomfort [Not Recovered/Not Resolved]
  - Vitamin D decreased [Not Recovered/Not Resolved]
  - Drug hypersensitivity [Unknown]
  - Gastrointestinal disorder [Unknown]
  - Gastric ulcer [Unknown]
  - Drug dose omission [Recovered/Resolved]
  - Off label use [Recovered/Resolved]
  - Off label use [Not Recovered/Not Resolved]
